FAERS Safety Report 19246643 (Version 1)
Quarter: 2021Q2

REPORT INFORMATION
  Report Type: Spontaneous
  Country: IR (occurrence: IR)
  Receive Date: 20210512
  Receipt Date: 20210512
  Transmission Date: 20210717
  Serious: Yes (Other)
  Sender: FDA-Public Use
  Company Number: IR-SUN PHARMACEUTICAL INDUSTRIES LTD-2021R1-295892

PATIENT
  Age: 53 Year
  Sex: Female

DRUGS (3)
  1. CISPLATIN. [Suspect]
     Active Substance: CISPLATIN
     Indication: CLEAR CELL ENDOMETRIAL CARCINOMA
     Dosage: UNK (4 CYCLES)
     Route: 065
  2. DOXORUBICIN [Suspect]
     Active Substance: DOXORUBICIN
     Indication: CLEAR CELL ENDOMETRIAL CARCINOMA
     Dosage: UNK (4 CYCLES)
     Route: 065
  3. BEVACIZUMAB. [Suspect]
     Active Substance: BEVACIZUMAB
     Indication: CLEAR CELL ENDOMETRIAL CARCINOMA
     Dosage: UNK (4 CYCLES)
     Route: 065

REACTIONS (1)
  - Drug resistance [Unknown]
